FAERS Safety Report 12389781 (Version 1)
Quarter: 2016Q2

REPORT INFORMATION
  Report Type: Spontaneous
  Country: DO (occurrence: DO)
  Receive Date: 20160520
  Receipt Date: 20160520
  Transmission Date: 20160815
  Serious: Yes (Hospitalization)
  Sender: FDA-Public Use
  Company Number: DO-ASTRAZENECA-2016SE52856

PATIENT
  Sex: Female

DRUGS (1)
  1. FORIXGA [Suspect]
     Active Substance: DAPAGLIFLOZIN
     Route: 048

REACTIONS (4)
  - Septic shock [Unknown]
  - Urinary tract infection [Unknown]
  - Hypotension [Unknown]
  - Fungal infection [Unknown]

NARRATIVE: CASE EVENT DATE: 20160513
